FAERS Safety Report 19419171 (Version 2)
Quarter: 2021Q3

REPORT INFORMATION
  Report Type: Spontaneous
  Country: FR (occurrence: FR)
  Receive Date: 20210615
  Receipt Date: 20210706
  Transmission Date: 20211014
  Serious: Yes (Other)
  Sender: FDA-Public Use
  Company Number: NVSC2021FR133257

PATIENT
  Age: 62 Year
  Sex: Female

DRUGS (2)
  1. TEGRETOL [Suspect]
     Active Substance: CARBAMAZEPINE
     Indication: BIPOLAR DISORDER
     Dosage: 2 DF, QD
     Route: 048
     Dates: start: 20191001
  2. TEGRETOL [Suspect]
     Active Substance: CARBAMAZEPINE
     Indication: FIBROMYALGIA

REACTIONS (5)
  - Cerebrovascular accident [Unknown]
  - Blood immunoglobulin M decreased [Unknown]
  - Cough [Unknown]
  - Lower respiratory tract congestion [Unknown]
  - Product use in unapproved indication [Unknown]

NARRATIVE: CASE EVENT DATE: 20191001
